FAERS Safety Report 25649858 (Version 1)
Quarter: 2025Q3

REPORT INFORMATION
  Report Type: Spontaneous
  Country: US (occurrence: US)
  Receive Date: 20250806
  Receipt Date: 20250806
  Transmission Date: 20251021
  Serious: No
  Sender: MERCK SHARP & DOHME LLC
  Company Number: US-009507513-2310425

PATIENT
  Age: 46 Year
  Sex: Male

DRUGS (3)
  1. BELZUTIFAN [Suspect]
     Active Substance: BELZUTIFAN
     Indication: Renal cancer
  2. CABOMETYX [Suspect]
     Active Substance: CABOZANTINIB S-MALATE
     Indication: Renal cancer
     Route: 048
     Dates: start: 202502
  3. CABOMETYX [Suspect]
     Active Substance: CABOZANTINIB S-MALATE
     Indication: Renal cancer
     Route: 048
     Dates: end: 20250523

REACTIONS (8)
  - Glossodynia [Unknown]
  - Pleural effusion [Unknown]
  - Dry skin [Unknown]
  - Dandruff [Unknown]
  - Fatigue [Unknown]
  - Hypermetropia [Unknown]
  - Dyspnoea [Unknown]
  - Pyrexia [Unknown]
